FAERS Safety Report 25089763 (Version 1)
Quarter: 2025Q1

REPORT INFORMATION
  Report Type: Spontaneous
  Country: US (occurrence: US)
  Receive Date: 20250318
  Receipt Date: 20250318
  Transmission Date: 20250409
  Serious: No
  Sender: TARO
  Company Number: US-TARO PHARMACEUTICALS USA INC.-2024TAR02532

PATIENT

DRUGS (1)
  1. ENALAPRIL [Suspect]
     Active Substance: ENALAPRIL
     Indication: Hypertension
     Dosage: UNK,PEACH COLORED, ROUND, BICONVEX, SLIGHTLY SPECKLED TABLET
     Route: 048

REACTIONS (3)
  - Hypotension [Unknown]
  - Product physical issue [Unknown]
  - Wrong technique in product usage process [Unknown]
